FAERS Safety Report 9748908 (Version 2)
Quarter: 2013Q4

REPORT INFORMATION
  Report Type: Spontaneous
  Country: US (occurrence: US)
  Receive Date: 20131212
  Receipt Date: 20131212
  Transmission Date: 20140711
  Serious: No
  Sender: FDA-Public Use
  Company Number: US-INCYTE CORPORATION-2013IN001150

PATIENT
  Age: 57 Year
  Sex: Female
  Weight: 77.1 kg

DRUGS (13)
  1. JAKAFI [Suspect]
     Indication: POLYCYTHAEMIA VERA
     Dosage: 10 MG, QD
     Route: 048
     Dates: start: 20130426
  2. JAKAFI [Suspect]
     Dosage: 10 MG, BID
     Route: 048
     Dates: start: 20130502
  3. JAKAFI [Suspect]
     Dosage: 10 MG, TID
     Route: 048
     Dates: start: 2013, end: 2013
  4. JAKAFI [Suspect]
     Dosage: 10 MG, BID
     Route: 048
     Dates: start: 2013
  5. NEURONTIN [Concomitant]
     Dosage: 300 MG
  6. IMDUR ER [Concomitant]
     Dosage: 30 MG
  7. CIPRO [Concomitant]
     Dosage: 500 MG
  8. BUPROPION HCL [Concomitant]
     Dosage: 10 MG
  9. MELOXICAM [Concomitant]
     Dosage: 7.5 MG
  10. ASPIRIN [Concomitant]
     Dosage: 81 MG
  11. METOPROLOL SUCCINATE [Concomitant]
     Dosage: 100 MG
  12. DOCUSATE SODIUM [Concomitant]
     Dosage: 100 MG
  13. SUDAFED [Concomitant]
     Dosage: 30 MG

REACTIONS (7)
  - Skin exfoliation [Unknown]
  - Muscle spasms [Unknown]
  - Malaise [Recovered/Resolved]
  - Pain [Recovered/Resolved]
  - Fatigue [Recovered/Resolved]
  - Extra dose administered [Unknown]
  - Haemoglobin decreased [Unknown]
